FAERS Safety Report 4388298-X (Version None)
Quarter: 2004Q2

REPORT INFORMATION
  Report Type: 
  Country: None (occurrence: None)
  Receive Date: 20040625
  Receipt Date: 20040613
  Transmission Date: 20050107
  Serious: No
  Sender: FDA-Public Use
  Company Number: A02200401938

PATIENT
  Age: 51 Year
  Sex: Male

DRUGS (1)
  1. PLAVIX [Suspect]
     Dosage: ORAL
     Route: 048
     Dates: start: 20010101, end: 20040501

REACTIONS (1)
  - PANCREATITIS ACUTE [None]
